FAERS Safety Report 25368751 (Version 1)
Quarter: 2025Q2

REPORT INFORMATION
  Report Type: Spontaneous
  Country: US (occurrence: None)
  Receive Date: 20250528
  Receipt Date: 20250528
  Transmission Date: 20250716
  Serious: Yes (Other)
  Sender: FDA-CTU
  Company Number: None

PATIENT
  Sex: Male

DRUGS (3)
  1. BCG LIVE [Suspect]
     Active Substance: BCG LIVE
     Dates: start: 20180401, end: 201901
  2. EPIRUBICIN [Suspect]
     Active Substance: EPIRUBICIN
  3. RADIATION THERAPY [Suspect]
     Active Substance: RADIATION THERAPY

REACTIONS (1)
  - Bladder cancer recurrent [None]

NARRATIVE: CASE EVENT DATE: 20210901
